FAERS Safety Report 9768208 (Version 1)
Quarter: 2013Q4

REPORT INFORMATION
  Report Type: Other
  Country: GB (occurrence: GB)
  Receive Date: 20131217
  Receipt Date: 20131217
  Transmission Date: 20140711
  Serious: Yes (Other)
  Sender: FDA-Public Use
  Company Number: GB-BRISTOL-MYERS SQUIBB COMPANY-19923663

PATIENT
  Age: 65 Year
  Sex: Male

DRUGS (4)
  1. TRIAMCINOLONE ACE INJ [Suspect]
     Route: 013
  2. RITONAVIR [Interacting]
     Indication: ANTIRETROVIRAL THERAPY
  3. MARAVIROC [Concomitant]
     Indication: ANTIRETROVIRAL THERAPY
  4. RALTEGRAVIR [Concomitant]
     Indication: ANTIRETROVIRAL THERAPY

REACTIONS (2)
  - Adrenal suppression [Unknown]
  - Drug interaction [Unknown]
